FAERS Safety Report 5771948-0 (Version None)
Quarter: 2008Q2

REPORT INFORMATION
  Report Type: 
  Country: None (occurrence: None)
  Receive Date: 20080612
  Receipt Date: 20080612
  Transmission Date: 20081010
  Serious: No
  Sender: FDA-Public Use
  Company Number: None

PATIENT
  Sex: Female

DRUGS (2)
  1. FLUPHENAZINE [Suspect]
     Dosage: 6MG IN THE MORNING PO
     Route: 048
     Dates: start: 20080423, end: 20080501
  2. FLUPHENAZINE [Suspect]
     Dosage: 12MG AT BEDTIME PO
     Route: 048

REACTIONS (1)
  - URINARY RETENTION [None]
